FAERS Safety Report 20162380 (Version 1)
Quarter: 2021Q4

REPORT INFORMATION
  Report Type: Spontaneous
  Country: JP (occurrence: JP)
  Receive Date: 20211208
  Receipt Date: 20211208
  Transmission Date: 20220303
  Serious: Yes (Other)
  Sender: FDA-Public Use
  Company Number: JP-IRONWOOD PHARMACEUTICALS, INC.-IRWD2021002403

PATIENT

DRUGS (2)
  1. LINACLOTIDE [Suspect]
     Active Substance: LINACLOTIDE
     Indication: Product used for unknown indication
     Dosage: 0.5 MG/DAY, BEFORE BREAKFAST
     Route: 048
  2. MAGNESIUM [Concomitant]
     Active Substance: MAGNESIUM
     Indication: Product used for unknown indication
     Dosage: UNK UNK, UNKNOWN FREQ.(TAKE ABOUT HALF OF THE WEEK)
     Route: 048

REACTIONS (4)
  - Diverticulum intestinal haemorrhagic [Unknown]
  - Anorectal swelling [Unknown]
  - Proctalgia [Unknown]
  - Diarrhoea [Unknown]

NARRATIVE: CASE EVENT DATE: 20211129
